FAERS Safety Report 5925822-7 (Version None)
Quarter: 2008Q4

REPORT INFORMATION
  Report Type: 
  Country: None (occurrence: None)
  Receive Date: 20081021
  Receipt Date: 20081009
  Transmission Date: 20090506
  Serious: Yes (Other)
  Sender: FDA-Public Use
  Company Number: AR-PFIZER INC-2008071219

PATIENT
  Sex: Female
  Weight: 60 kg

DRUGS (5)
  1. LYRICA [Suspect]
     Indication: TRIGEMINAL NEURALGIA
     Route: 048
     Dates: start: 20080801
  2. LYRICA [Suspect]
     Indication: NEURALGIA
  3. FLUNITRAZEPAM [Concomitant]
  4. ZOLPIDEM [Concomitant]
     Route: 048
  5. AMITRIPTYLINE HCL [Concomitant]
     Route: 048

REACTIONS (1)
  - HYPERTENSION [None]
